FAERS Safety Report 11618981 (Version 2)
Quarter: 2015Q4

REPORT INFORMATION
  Report Type: Spontaneous
  Country: JP (occurrence: JP)
  Receive Date: 20151012
  Receipt Date: 20151218
  Transmission Date: 20160304
  Serious: Yes (Death, Life-Threatening, Other)
  Sender: FDA-Public Use
  Company Number: PHJP2015JP017192

PATIENT
  Age: 0 Day
  Sex: Female
  Weight: 1.6 kg

DRUGS (1)
  1. EXFORGE [Suspect]
     Active Substance: AMLODIPINE BESYLATE\VALSARTAN
     Indication: FOETAL EXPOSURE DURING PREGNANCY
     Dosage: 1 DF, QD (MATERNAL DOSE)
     Route: 064

REACTIONS (11)
  - Hypoxic-ischaemic encephalopathy [Unknown]
  - Hypotension [Fatal]
  - Low birth weight baby [Unknown]
  - Anuria [Fatal]
  - Urinary retention [Fatal]
  - Premature baby [Unknown]
  - Renal disorder [Fatal]
  - Pulmonary hypoplasia [Unknown]
  - Respiratory disorder [Unknown]
  - Foetal exposure during pregnancy [Unknown]
  - Haemorrhage intracranial [Unknown]

NARRATIVE: CASE EVENT DATE: 20150928
